FAERS Safety Report 17098527 (Version 2)
Quarter: 2020Q3

REPORT INFORMATION
  Report Type: Spontaneous
  Country: BE (occurrence: BE)
  Receive Date: 20191202
  Receipt Date: 20200728
  Transmission Date: 20201102
  Serious: Yes (Other)
  Sender: FDA-Public Use
  Company Number: BE-PFIZER INC-2019513352

PATIENT
  Age: 4 Month

DRUGS (1)
  1. VANCOMYCIN HCL [Suspect]
     Active Substance: VANCOMYCIN HYDROCHLORIDE
     Dosage: 500 MG, SINGLE (1 DF )
     Route: 042

REACTIONS (2)
  - Anaphylactic reaction [Unknown]
  - Red man syndrome [Unknown]
